FAERS Safety Report 17163317 (Version 1)
Quarter: 2019Q4

REPORT INFORMATION
  Report Type: Spontaneous
  Country: JP (occurrence: JP)
  Receive Date: 20191217
  Receipt Date: 20191217
  Transmission Date: 20200122
  Serious: No
  Sender: FDA-Public Use
  Company Number: JP-ALKEM LABORATORIES LIMITED-JP-ALKEM-2019-08957

PATIENT
  Age: 60 Year
  Sex: Female

DRUGS (3)
  1. SOLIFENACIN [Suspect]
     Active Substance: SOLIFENACIN
     Indication: HYPERTONIC BLADDER
  2. SOLIFENACIN [Suspect]
     Active Substance: SOLIFENACIN
     Indication: ADJUVANT THERAPY
     Dosage: 5 MILLIGRAM, QD
     Route: 065
  3. MIRABEGRON [Suspect]
     Active Substance: MIRABEGRON
     Indication: HYPERTONIC BLADDER
     Dosage: 50 MILLIGRAM, QD
     Route: 065

REACTIONS (1)
  - Electrocardiogram T wave amplitude decreased [Not Recovered/Not Resolved]
